FAERS Safety Report 25489873 (Version 3)
Quarter: 2025Q3

REPORT INFORMATION
  Report Type: Spontaneous
  Country: JP (occurrence: JP)
  Receive Date: 20250627
  Receipt Date: 20250825
  Transmission Date: 20251020
  Serious: Yes (Death, Other)
  Sender: ELI LILLY AND COMPANY
  Company Number: JP-ELI_LILLY_AND_COMPANY-JP202506020697

PATIENT
  Age: 66 Year
  Sex: Male
  Weight: 50.1 kg

DRUGS (11)
  1. NECITUMUMAB [Suspect]
     Active Substance: NECITUMUMAB
     Indication: Squamous cell carcinoma of lung
     Route: 041
     Dates: start: 20250616
  2. GEMCITABINE [Suspect]
     Active Substance: GEMCITABINE
     Indication: Squamous cell carcinoma of lung
     Route: 041
     Dates: start: 20250616
  3. CISPLATIN [Suspect]
     Active Substance: CISPLATIN
     Indication: Squamous cell carcinoma of lung
     Route: 041
     Dates: start: 20250616
  4. OXYCODONE [Concomitant]
     Active Substance: OXYCODONE
     Dates: start: 20250526, end: 20250628
  5. OXYCODONE HYDROCHLORIDE [Concomitant]
     Active Substance: OXYCODONE HYDROCHLORIDE
     Dates: start: 20250609, end: 20250628
  6. LANSOPRAZOLE [Concomitant]
     Active Substance: LANSOPRAZOLE
     Dates: start: 20250517, end: 20250628
  7. TOLVAPTAN [Concomitant]
     Active Substance: TOLVAPTAN
     Dates: start: 20250619, end: 20250628
  8. PROCHLORPERAZINE MALEATE [Concomitant]
     Active Substance: PROCHLORPERAZINE MALEATE
     Dates: start: 20250526, end: 20250628
  9. MIYA-BM [Concomitant]
     Active Substance: CLOSTRIDIUM BUTYRICUM SPORES STRAIN M-55
     Dates: start: 20250605, end: 20250628
  10. BERBERINE\GERANIUM [Concomitant]
     Active Substance: BERBERINE\GERANIUM
     Dates: start: 20250506, end: 20250628
  11. BIO-THREE [Concomitant]
     Active Substance: HERBALS
     Dates: start: 20250517, end: 20250628

REACTIONS (7)
  - Malignant neoplasm progression [Fatal]
  - Neutrophil count decreased [Recovering/Resolving]
  - White blood cell count decreased [Unknown]
  - Decreased appetite [Not Recovered/Not Resolved]
  - Nausea [Not Recovered/Not Resolved]
  - Platelet count decreased [Not Recovered/Not Resolved]
  - Product ineffective [Unknown]

NARRATIVE: CASE EVENT DATE: 20250619
